FAERS Safety Report 8607645-3 (Version None)
Quarter: 2012Q3

REPORT INFORMATION
  Report Type: 
  Country: None (occurrence: None)
  Receive Date: 20120809
  Receipt Date: 20120809
  Transmission Date: 20120928
  Serious: Yes (Life-Threatening, Hospitalization)
  Sender: FDA-Public Use
  Company Number: None

PATIENT
  Age: 30 Year
  Sex: Male
  Weight: 86.4 kg

DRUGS (2)
  1. CYCLOBENZAPRINE [Suspect]
     Dosage: 1 TAB TWICE DAILY PO
     Route: 048
     Dates: start: 20111105, end: 20111109
  2. ... [Concomitant]
     Indication: PAIN
     Dosage: 1 TAB, PRN, PO
     Route: 048
     Dates: start: 20110930, end: 20111006

REACTIONS (1)
  - STEVENS-JOHNSON SYNDROME [None]
